FAERS Safety Report 14912313 (Version 1)
Quarter: 2018Q2

REPORT INFORMATION
  Report Type: Spontaneous
  Country: US (occurrence: US)
  Receive Date: 20180518
  Receipt Date: 20180518
  Transmission Date: 20180711
  Serious: No
  Sender: FDA-Public Use
  Company Number: US-STRIDES ARCOLAB LIMITED-2017SP015128

PATIENT

DRUGS (17)
  1. VANCOMYCIN [Suspect]
     Active Substance: VANCOMYCIN
     Dosage: INCREASING THE INFUSION TIME TO 3 H
     Route: 065
  2. DIPHENHYDRAMINE. [Concomitant]
     Active Substance: DIPHENHYDRAMINE
     Dosage: 25 MG, PRN
     Route: 065
  3. MINOCYCLINE [Concomitant]
     Active Substance: MINOCYCLINE\MINOCYCLINE HYDROCHLORIDE
     Indication: STAPHYLOCOCCAL INFECTION
     Dosage: UNK
     Route: 048
  4. MINOCYCLINE [Concomitant]
     Active Substance: MINOCYCLINE\MINOCYCLINE HYDROCHLORIDE
     Indication: INFECTIVE PULMONARY EXACERBATION OF CYSTIC FIBROSIS
     Dosage: UNK
     Route: 042
  5. VANCOMYCIN [Suspect]
     Active Substance: VANCOMYCIN
     Indication: INFECTIVE PULMONARY EXACERBATION OF CYSTIC FIBROSIS
     Dosage: LONGER INFUSION TIME OF 2 H
     Route: 065
  6. AZTREONAM. [Concomitant]
     Active Substance: AZTREONAM
     Indication: STAPHYLOCOCCAL INFECTION
     Dosage: UNK
     Route: 065
  7. VANCOMYCIN [Suspect]
     Active Substance: VANCOMYCIN
     Dosage: 2500 MG/DAY (53 MG/KG)
     Route: 065
  8. CEFTAROLINE [Concomitant]
     Active Substance: CEFTAROLINE
     Indication: INFECTIVE PULMONARY EXACERBATION OF CYSTIC FIBROSIS
  9. LINEZOLID. [Concomitant]
     Active Substance: LINEZOLID
     Indication: INFECTIVE PULMONARY EXACERBATION OF CYSTIC FIBROSIS
  10. DIPHENHYDRAMINE. [Concomitant]
     Active Substance: DIPHENHYDRAMINE
     Indication: INFECTIVE PULMONARY EXACERBATION OF CYSTIC FIBROSIS
     Dosage: 50 MG, UNKNOWN
     Route: 065
  11. LINEZOLID. [Concomitant]
     Active Substance: LINEZOLID
     Indication: STAPHYLOCOCCAL INFECTION
     Dosage: UNK
     Route: 065
  12. VANCOMYCIN [Suspect]
     Active Substance: VANCOMYCIN
     Dosage: 3000 MG, OVER 24H (64MG/KG)
     Route: 065
  13. AZTREONAM. [Concomitant]
     Active Substance: AZTREONAM
     Indication: INFECTIVE PULMONARY EXACERBATION OF CYSTIC FIBROSIS
  14. VANCOMYCIN [Suspect]
     Active Substance: VANCOMYCIN
     Indication: STAPHYLOCOCCAL INFECTION
     Dosage: INTERMITTENT DOSING
     Route: 065
  15. VANCOMYCIN [Suspect]
     Active Substance: VANCOMYCIN
     Dosage: UNK
     Route: 065
  16. DIPHENHYDRAMINE. [Concomitant]
     Active Substance: DIPHENHYDRAMINE
     Indication: STAPHYLOCOCCAL INFECTION
     Dosage: 25 MG, UNKNOWN
     Route: 065
  17. CEFTAROLINE [Concomitant]
     Active Substance: CEFTAROLINE
     Indication: STAPHYLOCOCCAL INFECTION
     Dosage: UNK
     Route: 065

REACTIONS (2)
  - Red man syndrome [Unknown]
  - Urticaria [Unknown]
